FAERS Safety Report 9239945 (Version 5)
Quarter: 2013Q3

REPORT INFORMATION
  Report Type: Spontaneous
  Country: US (occurrence: US)
  Receive Date: 20130418
  Receipt Date: 20130725
  Transmission Date: 20140515
  Serious: Yes (Death, Hospitalization)
  Sender: FDA-Public Use
  Company Number: US-BAXTER-2013BAX011887

PATIENT
  Age: 66 Year
  Sex: Female

DRUGS (5)
  1. DIANEAL LOW CALCIUM [Suspect]
     Indication: PERITONEAL DIALYSIS
     Route: 033
     Dates: start: 200908, end: 2011
  2. DIANEAL LOW CALCIUM [Suspect]
     Route: 033
  3. DIANEAL LOW CALCIUM [Suspect]
     Indication: PERITONEAL DIALYSIS
     Route: 033
     Dates: start: 200908, end: 2011
  4. DIANEAL LOW CALCIUM [Suspect]
     Route: 033
  5. DIANEAL LOW CALCIUM [Suspect]
     Indication: PERITONEAL DIALYSIS
     Route: 033
     Dates: end: 201303

REACTIONS (5)
  - Myocardial infarction [Fatal]
  - Sepsis [Recovering/Resolving]
  - Weight increased [Recovering/Resolving]
  - Feeling abnormal [Recovered/Resolved]
  - Fluid retention [Recovering/Resolving]
